FAERS Safety Report 7467321-X (Version None)
Quarter: 2011Q2

REPORT INFORMATION
  Report Type: 
  Country: None (occurrence: None)
  Receive Date: 20110509
  Receipt Date: 20101203
  Transmission Date: 20111010
  Serious: No
  Sender: FDA-Public Use
  Company Number: US-ALEXION-A201001558

PATIENT
  Sex: Female

DRUGS (7)
  1. ATIVAN [Concomitant]
     Indication: HEADACHE
     Dosage: UNK
  2. RESTORIL                           /00393701/ [Concomitant]
     Dosage: UNK
  3. PERCOCET [Concomitant]
     Indication: HEADACHE
     Dosage: UNK
  4. POTASSIUM [Concomitant]
     Dosage: UNK
  5. MULTI-VIT [Concomitant]
     Dosage: UNK
  6. SOLIRIS [Suspect]
     Indication: PAROXYSMAL NOCTURNAL HAEMOGLOBINURIA
     Dosage: UNK
     Route: 042
  7. ALPRAZOLAM [Concomitant]
     Dosage: UNK

REACTIONS (1)
  - HAEMOGLOBIN DECREASED [None]
